FAERS Safety Report 9451158 (Version 1)
Quarter: 2013Q3

REPORT INFORMATION
  Report Type: Spontaneous
  Country: US (occurrence: US)
  Receive Date: 20130809
  Receipt Date: 20130809
  Transmission Date: 20140515
  Serious: No
  Sender: FDA-Public Use
  Company Number: US-AMGEN-USASP2013015382

PATIENT
  Age: 84 Year
  Sex: Male
  Weight: 89.07 kg

DRUGS (12)
  1. NPLATE [Suspect]
     Indication: IMMUNE THROMBOCYTOPENIC PURPURA
     Dosage: 250 MUG, UNK
     Dates: start: 20120831
  2. DIOVAN [Concomitant]
  3. FENOFIBRATE [Concomitant]
  4. FERROUS SULFATE [Concomitant]
  5. GLIMEPIRIDE [Concomitant]
  6. HUMULIN R [Concomitant]
  7. HUMULIN N [Concomitant]
  8. LIPITOR [Concomitant]
  9. METOPROLOL [Concomitant]
  10. PRILOSEC                           /00661201/ [Concomitant]
  11. NIACIN [Concomitant]
  12. VITAMIN D                          /00107901/ [Concomitant]

REACTIONS (1)
  - Platelet count decreased [Unknown]
